FAERS Safety Report 5704422-8 (Version None)
Quarter: 2008Q2

REPORT INFORMATION
  Report Type: 
  Country: None (occurrence: None)
  Receive Date: 20080414
  Receipt Date: 20080404
  Transmission Date: 20081010
  Serious: Yes (Hospitalization)
  Sender: FDA-Public Use
  Company Number: B0515548A

PATIENT
  Age: 55 Year
  Sex: Female

DRUGS (10)
  1. AUGMENTIN '125' [Suspect]
     Indication: INFECTION
     Dosage: 1G THREE TIMES PER DAY
     Route: 042
     Dates: start: 20071214, end: 20071229
  2. OMEPRAZOLE [Suspect]
     Indication: DRUG USE FOR UNKNOWN INDICATION
     Dosage: 40MG PER DAY
     Route: 048
     Dates: start: 20071214, end: 20080108
  3. DEPAKENE [Suspect]
     Indication: DRUG USE FOR UNKNOWN INDICATION
     Dosage: 500MG TWICE PER DAY
     Route: 048
     Dates: start: 20071214, end: 20080108
  4. LOVENOX [Suspect]
     Indication: DRUG USE FOR UNKNOWN INDICATION
     Dosage: 4000IUAX PER DAY
     Route: 058
     Dates: start: 20071227, end: 20080105
  5. BACTRIM [Suspect]
     Indication: INFECTION
     Route: 048
     Dates: start: 20071214, end: 20071229
  6. CIFLOX [Suspect]
     Indication: INFECTION
     Dosage: 500MG TWICE PER DAY
     Route: 042
     Dates: start: 20071214, end: 20071229
  7. ROCEPHIN [Suspect]
     Indication: INFECTION
     Dosage: 2G TWICE PER DAY
     Route: 042
     Dates: start: 20071229, end: 20080211
  8. ERYTHROMYCIN [Suspect]
     Indication: INFECTION
     Dosage: 250MG THREE TIMES PER DAY
     Route: 042
     Dates: start: 20071229, end: 20080105
  9. FLAGYL [Suspect]
     Indication: INFECTION
     Dosage: 500MG THREE TIMES PER DAY
     Route: 048
     Dates: start: 20071229, end: 20080211
  10. COAPROVEL [Suspect]
     Indication: DRUG USE FOR UNKNOWN INDICATION
     Dosage: 150MG PER DAY
     Route: 048
     Dates: start: 20021203, end: 20080105

REACTIONS (1)
  - THROMBOCYTOPENIA [None]
